FAERS Safety Report 10459889 (Version 1)
Quarter: 2014Q3

REPORT INFORMATION
  Report Type: Report from Study
  Country: US (occurrence: US)
  Receive Date: 20140917
  Receipt Date: 20140917
  Transmission Date: 20150326
  Serious: Yes (Other)
  Sender: FDA-Public Use
  Company Number: PHEH2014US018462

PATIENT
  Sex: Male

DRUGS (1)
  1. RITALIN [Suspect]
     Active Substance: METHYLPHENIDATE HYDROCHLORIDE
     Dosage: UNK UKN, UNK

REACTIONS (5)
  - Anger [Unknown]
  - Aggression [Unknown]
  - Self injurious behaviour [Unknown]
  - Abnormal behaviour [Unknown]
  - Learning disorder [Unknown]
